FAERS Safety Report 23542545 (Version 1)
Quarter: 2024Q1

REPORT INFORMATION
  Report Type: Spontaneous
  Country: US (occurrence: US)
  Receive Date: 20240220
  Receipt Date: 20240220
  Transmission Date: 20240410
  Serious: Yes (Hospitalization, Other)
  Sender: FDA-Public Use
  Company Number: US-ALEMBIC PHARMACUETICALS LIMITED-2024SCAL000095

PATIENT

DRUGS (8)
  1. CELECOXIB [Suspect]
     Active Substance: CELECOXIB
     Indication: Metastases to liver
     Dosage: 200 MILLIGRAM, QD
     Route: 065
     Dates: start: 20170726
  2. CELECOXIB [Suspect]
     Active Substance: CELECOXIB
     Dosage: 200 MILLIGRAM, QD
     Route: 065
     Dates: start: 20170816, end: 20170908
  3. PEMBROLIZUMAB [Suspect]
     Active Substance: PEMBROLIZUMAB
     Indication: Metastases to liver
     Dosage: 2 MG/KG EVERY 3 WEEKS
     Route: 065
     Dates: start: 20170503, end: 20170705
  4. PEMBROLIZUMAB [Suspect]
     Active Substance: PEMBROLIZUMAB
     Dosage: 200 MG
     Route: 065
     Dates: start: 20170726
  5. PEMBROLIZUMAB [Suspect]
     Active Substance: PEMBROLIZUMAB
     Dosage: 200 MG
     Route: 065
     Dates: start: 20170816, end: 20170908
  6. PEMBROLIZUMAB [Suspect]
     Active Substance: PEMBROLIZUMAB
     Dosage: 2 MG/KG EVERY 3 WEEKS
     Route: 065
     Dates: start: 20181206, end: 20190228
  7. PEMBROLIZUMAB [Suspect]
     Active Substance: PEMBROLIZUMAB
     Dosage: UNK
  8. IPILIMUMAB [Suspect]
     Active Substance: IPILIMUMAB
     Indication: Metastases to liver
     Dosage: 1 MG/KG WAS STARTED EVERY 3 WEEKS
     Route: 065
     Dates: start: 20170816, end: 20170908

REACTIONS (16)
  - Skin toxicity [Unknown]
  - Rash pruritic [Unknown]
  - Polyneuropathy [Unknown]
  - Inappropriate antidiuretic hormone secretion [Unknown]
  - Autoimmune disorder [Unknown]
  - Autoimmune hepatitis [Unknown]
  - Pyrexia [Unknown]
  - Blood alkaline phosphatase increased [Recovered/Resolved]
  - Aspartate aminotransferase increased [Recovered/Resolved]
  - Alanine aminotransferase increased [Recovered/Resolved]
  - Toxicity to various agents [Unknown]
  - Liver function test abnormal [Recovered/Resolved]
  - Blood sodium decreased [Unknown]
  - Decreased appetite [Unknown]
  - Asthenia [Unknown]
  - Product use in unapproved indication [Unknown]
